FAERS Safety Report 4874177-8 (Version None)
Quarter: 2006Q1

REPORT INFORMATION
  Report Type: 
  Country: None (occurrence: None)
  Receive Date: 20060104
  Receipt Date: 20051219
  Transmission Date: 20060701
  Serious: Yes (Other)
  Sender: FDA-Public Use
  Company Number: 2005170556

PATIENT
  Sex: Male
  Weight: 115.6672 kg

DRUGS (12)
  1. VIAGRA [Suspect]
     Indication: ERECTILE DYSFUNCTION
     Dosage: (PRN), ORAL
     Route: 048
  2. NOVOLIN N [Concomitant]
  3. OCUVITE (ASCORBIC ACID, RETINOL, TOCOPHEROL) [Concomitant]
  4. POTASSIUM (POTASSIUM) [Concomitant]
  5. LISINOPRIL [Concomitant]
  6. TERAZOSIN (TERAZOSIN) [Concomitant]
  7. ATENOLOL [Concomitant]
  8. ASPIRIN [Concomitant]
  9. ACETAMINOPHEN [Concomitant]
  10. HYDROCHLOROTHIAZIDE [Concomitant]
  11. RANITIDINE HCL [Concomitant]
  12. NORTRIPTYLINE HCL [Concomitant]

REACTIONS (6)
  - CATARACT OPERATION [None]
  - DIABETIC BLINDNESS [None]
  - DRUG INEFFECTIVE [None]
  - GLAUCOMA [None]
  - MACULAR DEGENERATION [None]
  - RETINAL DETACHMENT [None]
